FAERS Safety Report 5978812-2 (Version None)
Quarter: 2008Q4

REPORT INFORMATION
  Report Type: 
  Country: None (occurrence: None)
  Receive Date: 20081204
  Receipt Date: 20081126
  Transmission Date: 20090506
  Serious: Yes (Hospitalization)
  Sender: FDA-Public Use
  Company Number: PHHY2008JP26738

PATIENT
  Sex: Male

DRUGS (14)
  1. TEGRETOL [Suspect]
     Indication: INTERCOSTAL NEURALGIA
     Dosage: UNK
     Route: 048
     Dates: start: 20080912, end: 20081028
  2. TEGRETOL [Suspect]
     Dosage: 200 MG DAILY
     Route: 048
     Dates: start: 20080912, end: 20081028
  3. LOXONIN [Suspect]
     Indication: INTERCOSTAL NEURALGIA
     Dosage: 180 MG DAILY
     Route: 048
     Dates: start: 20080905, end: 20081028
  4. LOXONIN [Suspect]
     Dosage: 180 MG, UNK
     Route: 048
     Dates: start: 20080905, end: 20081028
  5. OMEPRAZOLE [Suspect]
     Indication: GASTRIC ULCER
     Dosage: 20 MG DAILY
     Route: 048
     Dates: start: 20080701, end: 20081028
  6. AMLODIN [Suspect]
     Indication: HYPERTENSION
     Dosage: 5 MG/DAY
     Route: 048
     Dates: start: 20080921
  7. AMLODIN [Suspect]
     Dosage: 5 MG, ONCE/SINGLE
     Route: 048
     Dates: start: 20080921
  8. MUCOSTA [Concomitant]
     Dosage: 300 MG, UNK
     Route: 048
     Dates: start: 20080701, end: 20081028
  9. PAXIL [Concomitant]
     Indication: INTERCOSTAL NEURALGIA
     Dosage: 10 MG DAILY
     Route: 048
     Dates: start: 20080904
  10. PAXIL [Concomitant]
     Dosage: 10 MG, UNK
     Route: 048
     Dates: start: 20080912, end: 20081028
  11. ASTOMIN [Concomitant]
     Indication: COUGH
     Dosage: 30 MG, UNK
     Route: 048
     Dates: start: 20080701, end: 20081028
  12. CYANOCOBALAMIN [Concomitant]
     Dosage: 1500 MG, UNK
     Route: 048
     Dates: start: 20080701, end: 20081028
  13. OXYCONTIN [Concomitant]
     Indication: INTERCOSTAL NEURALGIA
     Dosage: 10 MG, UNK
     Route: 048
     Dates: start: 20080911
  14. MAGNESIUM OXIDE [Concomitant]
     Indication: CONSTIPATION
     Dosage: 1.5G, UNK
     Dates: start: 20080911

REACTIONS (9)
  - BLOOD GLUCOSE INCREASED [None]
  - CHEST X-RAY ABNORMAL [None]
  - COUGH [None]
  - DYSPNOEA [None]
  - HYPOXIA [None]
  - INTERSTITIAL LUNG DISEASE [None]
  - OXYGEN SATURATION DECREASED [None]
  - OXYGEN SUPPLEMENTATION [None]
  - WOUND COMPLICATION [None]
